FAERS Safety Report 25255953 (Version 1)
Quarter: 2025Q2

REPORT INFORMATION
  Report Type: Spontaneous
  Country: US (occurrence: US)
  Receive Date: 20250430
  Receipt Date: 20250430
  Transmission Date: 20250716
  Serious: Yes (Hospitalization, Other)
  Sender: ABBVIE
  Company Number: US-ABBVIE-6253296

PATIENT
  Age: 30 Year
  Sex: Female
  Weight: 143.78 kg

DRUGS (2)
  1. SKYRIZI [Suspect]
     Active Substance: RISANKIZUMAB-RZAA
     Indication: Crohn^s disease
     Dosage: FORM STRENGTH: 360 MILLIGRAM?START DATE TEXT: MAY OR JUNE 2024?FINISHED 3 INFUSIONS?DOSE FORM : S...
     Route: 058
  2. SKYRIZI [Suspect]
     Active Substance: RISANKIZUMAB-RZAA
     Indication: Crohn^s disease
     Route: 042
     Dates: start: 202501

REACTIONS (5)
  - Wrist fracture [Recovering/Resolving]
  - Road traffic accident [Recovered/Resolved]
  - Injection site mass [Recovered/Resolved]
  - Incorrect dose administered [Recovered/Resolved]
  - Lower limb fracture [Recovering/Resolving]

NARRATIVE: CASE EVENT DATE: 20240406
